FAERS Safety Report 15965318 (Version 1)
Quarter: 2019Q1

REPORT INFORMATION
  Report Type: Spontaneous
  Country: GB (occurrence: GB)
  Receive Date: 20190215
  Receipt Date: 20190215
  Transmission Date: 20190418
  Serious: No
  Sender: FDA-Public Use
  Company Number: GB-ALKEM LABORATORIES LIMITED-GB-ALKEM-2018-06175

PATIENT

DRUGS (2)
  1. METRONIDAZOLE. [Suspect]
     Active Substance: METRONIDAZOLE
     Indication: INFECTION PROPHYLAXIS
     Dosage: 600 MG, QD (INTRAVENOUSLY FOR 2 DAYS AND THEN ORALLY FOR 7)
     Route: 042
     Dates: start: 20170820
  2. CEPHALEXIN. [Suspect]
     Active Substance: CEPHALEXIN
     Indication: PRODUCT USED FOR UNKNOWN INDICATION
     Dosage: 1500 MG, QD (INTRAVENOUSLY FOR 2 DAYS AND THEN ORALLY FOR 7)
     Route: 042
     Dates: start: 20170820

REACTIONS (1)
  - Exposure via breast milk [Unknown]
